FAERS Safety Report 8935690 (Version 2)
Quarter: 2012Q4

REPORT INFORMATION
  Report Type: 
  Country: AT (occurrence: AT)
  Receive Date: 20121130
  Receipt Date: 20121205
  Transmission Date: 20130627
  Serious: Yes (Other)
  Sender: FDA-Public Use
  Company Number: PHHY2012AT101548

PATIENT
  Age: 13 Year
  Sex: Male
  Weight: 54 kg

DRUGS (1)
  1. GLIVEC [Suspect]
     Indication: CHRONIC MYELOID LEUKAEMIA
     Dosage: 600 mg, QD
     Route: 048
     Dates: start: 20120515

REACTIONS (4)
  - Pallor [Unknown]
  - Weight decreased [Unknown]
  - Nausea [Unknown]
  - Fatigue [Unknown]
